FAERS Safety Report 25369573 (Version 1)
Quarter: 2025Q2

REPORT INFORMATION
  Report Type: 
  Country: US (occurrence: US)
  Receive Date: 20250528
  Receipt Date: 20250528
  Transmission Date: 20250717
  Serious: Yes (Life-Threatening, Hospitalization, Other)
  Sender: CB FLEET
  Company Number: US-PRESTIGE-202505-US-001455

PATIENT
  Age: 35 Year
  Sex: Female

DRUGS (2)
  1. DIPHENHYDRAMINE HYDROCHLORIDE [Suspect]
     Active Substance: DIPHENHYDRAMINE HYDROCHLORIDE
     Indication: Intentional self-injury
  2. ALCOHOL [Concomitant]
     Active Substance: ALCOHOL

REACTIONS (3)
  - Generalised tonic-clonic seizure [Recovered/Resolved]
  - Bundle branch block left [Recovered/Resolved]
  - Suicide attempt [None]
